FAERS Safety Report 11893732 (Version 2)
Quarter: 2016Q2

REPORT INFORMATION
  Report Type: Spontaneous
  Country: FR (occurrence: FR)
  Receive Date: 20160106
  Receipt Date: 20160505
  Transmission Date: 20160815
  Serious: Yes (Other)
  Sender: FDA-Public Use
  Company Number: FR-SEPTODONT-201503133

PATIENT
  Age: 43 Year
  Sex: Female

DRUGS (1)
  1. DELTAZINE 40 MG/ML ADR?NALIN?E AU 1/200.000 [Suspect]
     Active Substance: ARTICAINE\EPINEPHRINE
     Indication: LOCAL ANAESTHESIA
     Dosage: BY OSTEO-CENTRAL ANESTHESIA WITH QUICKSLIPER INJECTION TECHNIQUE
     Route: 004
     Dates: start: 20151106

REACTIONS (4)
  - Palpitations [Recovered/Resolved]
  - Chest pain [Recovered/Resolved]
  - Dysphagia [Recovered/Resolved]
  - Presyncope [Recovered/Resolved]

NARRATIVE: CASE EVENT DATE: 20151106
